FAERS Safety Report 5217962-5 (Version None)
Quarter: 2007Q1

REPORT INFORMATION
  Report Type: 
  Country: None (occurrence: None)
  Receive Date: 20070124
  Receipt Date: 20070112
  Transmission Date: 20070707
  Serious: Yes (Hospitalization)
  Sender: FDA-Public Use
  Company Number: PHEH2007US00866

PATIENT
  Sex: Female

DRUGS (10)
  1. GLEEVEC [Suspect]
     Indication: ACUTE LYMPHOCYTIC LEUKAEMIA
     Route: 048
     Dates: start: 20060101
  2. GLEEVEC [Suspect]
     Dosage: 600 MG, QD
     Route: 048
     Dates: start: 20070101
  3. ACYCLOVIR [Concomitant]
  4. ISONIAZID [Concomitant]
  5. NEXIUM [Concomitant]
  6. SYNTHROID [Concomitant]
  7. REGLAN [Concomitant]
  8. ORAL CONTRACEPTIVE NOS [Concomitant]
  9. PYRIDOXINE HCL [Concomitant]
  10. BACTRIM [Concomitant]

REACTIONS (2)
  - FUNGAL INFECTION [None]
  - NAUSEA [None]
